FAERS Safety Report 17837557 (Version 1)
Quarter: 2020Q2

REPORT INFORMATION
  Report Type: Spontaneous
  Country: GB (occurrence: GB)
  Receive Date: 20200528
  Receipt Date: 20200528
  Transmission Date: 20200714
  Serious: Yes (Life-Threatening, Other)
  Sender: FDA-Public Use
  Company Number: GB-ETHYPHARM-202000867

PATIENT
  Age: 38 Year
  Sex: Male

DRUGS (3)
  1. BENZODIAZEPINE [Concomitant]
     Active Substance: BENZODIAZEPINE
  2. BUPRENORPHINE. [Concomitant]
     Active Substance: BUPRENORPHINE
  3. ESPRANOR [Suspect]
     Active Substance: BUPRENORPHINE HYDROCHLORIDE
     Indication: DRUG WITHDRAWAL SYNDROME
     Dosage: COMMENCED 4MG, TITRATED TO 16MG
     Route: 002
     Dates: start: 20200416, end: 20200426

REACTIONS (4)
  - Swollen tongue [Recovered/Resolved]
  - Malaise [Unknown]
  - Reaction to excipient [Unknown]
  - Urticaria [Recovering/Resolving]

NARRATIVE: CASE EVENT DATE: 20200426
